FAERS Safety Report 8790940 (Version 3)
Quarter: 2013Q1

REPORT INFORMATION
  Report Type: Spontaneous
  Country: US (occurrence: None)
  Receive Date: 20120907
  Receipt Date: 20120913
  Transmission Date: 20140127
  Serious: Yes (Other)
  Sender: FDA-Public Use
  Company Number: USA/USA/12/0025670

PATIENT
  Age: 9 Year
  Sex: Male
  Weight: 21.77 kg

DRUGS (1)
  1. OMEPRAZOLE [Suspect]
     Indication: OESOPHAGITIS ULCERATIVE
     Dosage: 20MG 2 IN 1DAY ORAL
     Route: 048
     Dates: start: 20120507

REACTIONS (4)
  - Asthma [None]
  - Incorrect dose administered [None]
  - Autoimmune disorder [None]
  - Alopecia totalis [None]
